FAERS Safety Report 17428138 (Version 1)
Quarter: 2020Q1

REPORT INFORMATION
  Report Type: Spontaneous
  Country: US (occurrence: US)
  Receive Date: 20200217
  Receipt Date: 20200217
  Transmission Date: 20200409
  Serious: No
  Sender: FDA-Public Use
  Company Number: None

PATIENT

DRUGS (1)
  1. HEPARIN SODIUM. [Suspect]
     Active Substance: HEPARIN SODIUM

REACTIONS (4)
  - Therapeutic response decreased [None]
  - Coagulation time [None]
  - Manufacturing materials issue [None]
  - Bleeding time prolonged [None]

NARRATIVE: CASE EVENT DATE: 20200217
